FAERS Safety Report 6455166-9 (Version None)
Quarter: 2009Q4

REPORT INFORMATION
  Report Type: 
  Country: None (occurrence: None)
  Receive Date: 20091119
  Receipt Date: 20091109
  Transmission Date: 20100525
  Serious: Yes (Other)
  Sender: FDA-Public Use
  Company Number: 2009015872

PATIENT
  Age: 58 Year
  Sex: Female
  Weight: 77.1115 kg

DRUGS (4)
  1. AMRIX [Suspect]
     Indication: MUSCLE SPASMS
     Dosage: 15 MG (15 MG, 1 IN 1 D), ORAL
     Route: 048
     Dates: start: 20091106, end: 20091107
  2. PREVACID [Concomitant]
  3. TRAMADOL HCL [Concomitant]
  4. PROZAC [Concomitant]

REACTIONS (1)
  - DRUG HYPERSENSITIVITY [None]
